FAERS Safety Report 5883087-9 (Version None)
Quarter: 2008Q3

REPORT INFORMATION
  Report Type: 
  Country: None (occurrence: None)
  Receive Date: 20080913
  Receipt Date: 20080827
  Transmission Date: 20090109
  Serious: Yes (Hospitalization)
  Sender: FDA-Public Use
  Company Number: US-ABBOTT-08P-163-0473112-00

PATIENT
  Sex: Female
  Weight: 67.192 kg

DRUGS (22)
  1. HUMIRA [Suspect]
     Indication: ANKYLOSING SPONDYLITIS
  2. OXYCODONE HCL [Concomitant]
     Indication: ANKYLOSING SPONDYLITIS
     Route: 048
     Dates: end: 20080201
  3. OXYCODONE HCL [Concomitant]
     Route: 048
     Dates: start: 20080227, end: 20080803
  4. DIPHENHYDRAMINE HYDROCHLORIDE [Concomitant]
     Indication: HYPERSENSITIVITY
     Route: 048
     Dates: end: 20080401
  5. DIPHENHYDRAMINE HYDROCHLORIDE [Concomitant]
     Route: 048
     Dates: start: 20080402
  6. LORATADINE [Concomitant]
     Indication: HYPERSENSITIVITY
     Route: 048
     Dates: start: 20080201
  7. CYCLOBENZAPRINE HCL [Concomitant]
     Indication: ANKYLOSING SPONDYLITIS
     Route: 048
     Dates: start: 20080201
  8. LORTAB [Concomitant]
     Indication: ANKYLOSING SPONDYLITIS
     Route: 048
     Dates: end: 20080415
  9. LORTAB [Concomitant]
     Route: 048
     Dates: start: 20080803
  10. FEXOFENADINE [Concomitant]
     Indication: HYPERSENSITIVITY
     Route: 048
     Dates: end: 20080201
  11. TRIAMCINOLONE ACETONIDE [Concomitant]
     Indication: HYPERSENSITIVITY
     Route: 045
     Dates: end: 20080201
  12. CARISOPRODOL [Concomitant]
     Indication: ANKYLOSING SPONDYLITIS
     Route: 048
     Dates: end: 20080201
  13. VITAMIN TAB [Concomitant]
     Indication: VITAMIN SUPPLEMENTATION
     Route: 048
     Dates: start: 20080201
  14. FOLIC ACID [Concomitant]
     Indication: DRUG USE FOR UNKNOWN INDICATION
     Route: 048
  15. VIGRAN [Concomitant]
     Indication: DRUG USE FOR UNKNOWN INDICATION
     Route: 048
     Dates: end: 20080201
  16. B-KOMPLEX [Concomitant]
     Indication: DRUG USE FOR UNKNOWN INDICATION
     Route: 048
  17. IRON [Concomitant]
     Indication: ANAEMIA
     Route: 042
     Dates: end: 20080711
  18. IRON [Concomitant]
     Route: 042
     Dates: start: 20080712
  19. CAFFEINE [Concomitant]
     Indication: DRUG USE FOR UNKNOWN INDICATION
     Route: 048
     Dates: start: 20080221, end: 20080730
  20. CAFFEINE [Concomitant]
     Route: 048
     Dates: end: 20080221
  21. MELOXICAM [Concomitant]
     Indication: ANKYLOSING SPONDYLITIS
     Route: 048
     Dates: end: 20080201
  22. PREDNISONE TAB [Concomitant]
     Indication: ANKYLOSING SPONDYLITIS
     Route: 048
     Dates: start: 20080807

REACTIONS (9)
  - ANAEMIA [None]
  - KIDNEY INFECTION [None]
  - MIGRAINE [None]
  - NAUSEA [None]
  - NEURALGIA [None]
  - PAIN [None]
  - PYREXIA [None]
  - SINUSITIS [None]
  - UTERINE CONTRACTIONS DURING PREGNANCY [None]
